FAERS Safety Report 17733835 (Version 2)
Quarter: 2020Q3

REPORT INFORMATION
  Report Type: Spontaneous
  Country: US (occurrence: US)
  Receive Date: 20200501
  Receipt Date: 20200724
  Transmission Date: 20201102
  Serious: Yes (Other)
  Sender: FDA-Public Use
  Company Number: US-ACCORD-180061

PATIENT
  Age: 51 Year
  Sex: Male

DRUGS (2)
  1. MYCOPHENOLIC ACID. [Suspect]
     Active Substance: MYCOPHENOLIC ACID
     Indication: IMMUNOSUPPRESSION
  2. PREDNISONE. [Suspect]
     Active Substance: PREDNISONE
     Indication: IMMUNOSUPPRESSION
     Dosage: HIGH?DOSE

REACTIONS (3)
  - Cerebrovascular accident [Recovering/Resolving]
  - Vasculitis necrotising [Recovering/Resolving]
  - Varicella zoster virus infection [Recovering/Resolving]
